FAERS Safety Report 16827475 (Version 2)
Quarter: 2020Q1

REPORT INFORMATION
  Report Type: Report from Study
  Country: None (occurrence: US)
  Receive Date: 20190919
  Receipt Date: 20200116
  Transmission Date: 20200409
  Serious: Yes (Hospitalization, Other)
  Sender: FDA-Public Use
  Company Number: US-ABBVIE-19K-163-2928641-00

PATIENT
  Sex: Female
  Weight: 53.57 kg

DRUGS (1)
  1. HUMIRA [Suspect]
     Active Substance: ADALIMUMAB
     Indication: RHEUMATOID ARTHRITIS
     Route: 058

REACTIONS (5)
  - Gallbladder operation [Unknown]
  - Infection [Not Recovered/Not Resolved]
  - Loss of consciousness [Unknown]
  - Dehydration [Unknown]
  - Concussion [Not Recovered/Not Resolved]
